FAERS Safety Report 11198551 (Version 1)
Quarter: 2015Q2

REPORT INFORMATION
  Report Type: Spontaneous
  Country: US (occurrence: US)
  Receive Date: 20150618
  Receipt Date: 20150618
  Transmission Date: 20150821
  Serious: No
  Sender: FDA-Public Use
  Company Number: US-ACCORD-030591

PATIENT
  Age: 68 Year
  Sex: Male

DRUGS (1)
  1. AMITRIPTYLINE ACCORD [Suspect]
     Active Substance: AMITRIPTYLINE
     Indication: SLEEP DISORDER
     Dosage: STRENGTH 75 MG
     Route: 048
     Dates: start: 20150408

REACTIONS (3)
  - Drug ineffective [Recovered/Resolved]
  - Myalgia [Recovered/Resolved]
  - Product substitution issue [Unknown]
